FAERS Safety Report 6179175-2 (Version None)
Quarter: 2009Q2

REPORT INFORMATION
  Report Type: 
  Country: None (occurrence: None)
  Receive Date: 20090505
  Receipt Date: 20090424
  Transmission Date: 20091009
  Serious: Yes (Hospitalization, Other)
  Sender: FDA-Public Use
  Company Number: US-BAYER-200916029NA

PATIENT
  Age: 28 Year
  Sex: Female

DRUGS (1)
  1. MIRENA [Suspect]
     Indication: CONTRACEPTION
     Dosage: CONTINUOUS
     Route: 015
     Dates: start: 20080812

REACTIONS (20)
  - ABDOMINAL PAIN LOWER [None]
  - AGGRESSION [None]
  - AMENORRHOEA [None]
  - BLOOD GLUCOSE DECREASED [None]
  - BLOOD IRON INCREASED [None]
  - CHEMICAL POISONING [None]
  - CONVULSION [None]
  - DYSGEUSIA [None]
  - DYSPAREUNIA [None]
  - EATING DISORDER [None]
  - FAECES DISCOLOURED [None]
  - HOSPITALISATION [None]
  - INSOMNIA [None]
  - MENSTRUATION IRREGULAR [None]
  - MIGRAINE [None]
  - STRESS [None]
  - UNEVALUABLE EVENT [None]
  - VAGINAL HAEMORRHAGE [None]
  - VOMITING [None]
  - WEIGHT LOSS POOR [None]
